FAERS Safety Report 4337803-8 (Version None)
Quarter: 2004Q2

REPORT INFORMATION
  Report Type: 
  Country: None (occurrence: None)
  Receive Date: 20040408
  Receipt Date: 20040402
  Transmission Date: 20050107
  Serious: Yes (Other)
  Sender: FDA-Public Use
  Company Number: STA-AE-04-MTX-140

PATIENT
  Age: 51 Year
  Sex: Female

DRUGS (3)
  1. METHOTREXATE [Suspect]
     Indication: RHEUMATOID ARTHRITIS
     Dosage: 2.5 MG EVERY 12 HOURS X 3 DOSES PER WEEK, ORAL
     Route: 048
     Dates: start: 19980101, end: 19991101
  2. PREDNISOLONE [Concomitant]
  3. QUININE (QUININE) [Concomitant]

REACTIONS (1)
  - ASEPTIC NECROSIS BONE [None]
